FAERS Safety Report 4675679-X (Version None)
Quarter: 2005Q2

REPORT INFORMATION
  Report Type: 
  Country: None (occurrence: None)
  Receive Date: 20050527
  Receipt Date: 20040602
  Transmission Date: 20051028
  Serious: No
  Sender: FDA-Public Use
  Company Number: US-BRISTOL-MYERS SQUIBB COMPANY-12603932

PATIENT
  Age: 42 Year
  Sex: Female
  Weight: 50 kg

DRUGS (5)
  1. ERBITUX [Suspect]
     Indication: COLORECTAL CANCER METASTATIC
     Dosage: WEEKLY FOR 4 OUT OF 6 WEEKS
     Route: 042
  2. IRINOTECAN [Concomitant]
     Indication: COLORECTAL CANCER METASTATIC
     Dosage: WEEKLY FOR 4 OUT OF 6 WEEKS.
  3. KYTRIL [Concomitant]
     Indication: PREMEDICATION
  4. DECADRON [Concomitant]
     Indication: PREMEDICATION
  5. PHENERGAN [Concomitant]
     Indication: PREMEDICATION

REACTIONS (7)
  - ABDOMINAL DISCOMFORT [None]
  - ACNE [None]
  - MALIGNANT NEOPLASM PROGRESSION [None]
  - RASH [None]
  - RASH MACULAR [None]
  - RASH PAPULAR [None]
  - RASH PUSTULAR [None]
